FAERS Safety Report 7009216-1 (Version None)
Quarter: 2010Q3

REPORT INFORMATION
  Report Type: 
  Country: None (occurrence: None)
  Receive Date: 20100921
  Receipt Date: 20100908
  Transmission Date: 20110219
  Serious: Yes (Hospitalization, Disabling, Other)
  Sender: FDA-Public Use
  Company Number: 2009AC000260

PATIENT
  Age: 34 Year
  Sex: Female

DRUGS (52)
  1. DIGOXIN [Suspect]
     Indication: PRODUCT USED FOR UNKNOWN INDICATION
     Dosage: 0.25 MG;QD;PO
     Route: 048
     Dates: start: 19990101
  2. DIGOXIN [Suspect]
     Indication: PRODUCT USED FOR UNKNOWN INDICATION
     Dosage: 0.25 MG;QD;PO
     Route: 048
     Dates: start: 19981201
  3. DIGOXIN [Suspect]
     Indication: PRODUCT USED FOR UNKNOWN INDICATION
     Dosage: 0.125 MG;QD;PO
     Route: 048
     Dates: start: 20061007
  4. DIGOXIN [Suspect]
     Indication: PRODUCT USED FOR UNKNOWN INDICATION
     Dosage: 0.125 MG;TIW;PO
     Route: 048
     Dates: start: 20061018
  5. DIGOXIN [Suspect]
     Indication: PRODUCT USED FOR UNKNOWN INDICATION
     Dosage: IV
     Route: 042
     Dates: start: 20070725, end: 20070726
  6. DIGOXIN [Suspect]
     Indication: PRODUCT USED FOR UNKNOWN INDICATION
     Dosage: IV
     Route: 042
     Dates: start: 20070727
  7. DIGOXIN [Suspect]
     Indication: PRODUCT USED FOR UNKNOWN INDICATION
     Dosage: IV
     Route: 042
     Dates: start: 20070727
  8. K-DUR [Concomitant]
  9. LASIX [Concomitant]
  10. ASPIRIN [Concomitant]
  11. SPIORONLACTONE [Concomitant]
  12. MIRTAZAPINE [Concomitant]
  13. VASOTEC [Concomitant]
  14. CATAPRES [Concomitant]
  15. TOROL XL [Concomitant]
  16. LOTENSIN [Concomitant]
  17. CELL-CEPT [Concomitant]
  18. PROGRAF [Concomitant]
  19. PREDNISONE [Concomitant]
  20. SIMVASTATIN [Concomitant]
  21. LISINOPRIL [Concomitant]
  22. POTASSIUM [Concomitant]
  23. CLONAZEPAM [Concomitant]
  24. SPIRONOLACTONE [Concomitant]
  25. ZOLOFT [Concomitant]
  26. LASIX [Concomitant]
  27. TEMAZEPAM [Concomitant]
  28. TOPROL-XL [Concomitant]
  29. K-DUR [Concomitant]
  30. AVAPRO [Concomitant]
  31. ASPIRIN [Concomitant]
  32. FUROSEMIDE [Concomitant]
  33. MIDRIN [Concomitant]
  34. FLEXERIL [Concomitant]
  35. POTASSIUM CHLORIDE [Concomitant]
  36. ZAROXOLYN [Concomitant]
  37. PACERONE [Concomitant]
  38. COREG [Concomitant]
  39. DOBUTAMINE [Concomitant]
  40. METOLAZONE [Concomitant]
  41. AUGMENTIN '125' [Concomitant]
  42. PRIMACOR [Concomitant]
  43. ATIVAN [Concomitant]
  44. TORADOL [Concomitant]
  45. TYLENOL [Concomitant]
  46. AMIODARONE [Concomitant]
  47. EFFEXOR [Concomitant]
  48. EXCEDRIN PM [Concomitant]
  49. REMERON [Concomitant]
  50. LOVENOX [Concomitant]
  51. COUMADIN [Concomitant]
  52. BENAZEPRIL HYDROCHLORIDE [Concomitant]

REACTIONS (56)
  - ANAEMIA [None]
  - ANXIETY [None]
  - ASTHENIA [None]
  - ATELECTASIS [None]
  - BLOOD POTASSIUM DECREASED [None]
  - BRADYCARDIA [None]
  - CAESAREAN SECTION [None]
  - CARDIAC FAILURE CONGESTIVE [None]
  - CARDIOACTIVE DRUG LEVEL DECREASED [None]
  - CARDIOMEGALY [None]
  - CARDIOMYOPATHY [None]
  - CHEST DISCOMFORT [None]
  - CHEST PAIN [None]
  - CONGESTIVE CARDIOMYOPATHY [None]
  - DEHYDRATION [None]
  - DENTAL CARIES [None]
  - DEPRESSION [None]
  - DIZZINESS [None]
  - DYSPNOEA [None]
  - ECONOMIC PROBLEM [None]
  - EJECTION FRACTION DECREASED [None]
  - EMPHYSEMA [None]
  - FALL [None]
  - HAEMOTHORAX [None]
  - HEADACHE [None]
  - HEART TRANSPLANT [None]
  - HYPERKALAEMIA [None]
  - HYPERTENSION [None]
  - HYSTERECTOMY [None]
  - INCORRECT DOSE ADMINISTERED [None]
  - JOINT SWELLING [None]
  - LIMB INJURY [None]
  - MATERNAL DRUGS AFFECTING FOETUS [None]
  - MENORRHAGIA [None]
  - MITRAL VALVE INCOMPETENCE [None]
  - MULTIPLE INJURIES [None]
  - MUSCLE SPASMS [None]
  - MUSCULAR WEAKNESS [None]
  - NAUSEA [None]
  - OEDEMA PERIPHERAL [None]
  - PANIC ATTACK [None]
  - PARAESTHESIA [None]
  - PNEUMONIA ASPIRATION [None]
  - POST PROCEDURAL COMPLICATION [None]
  - POSTPARTUM DISORDER [None]
  - PRE-ECLAMPSIA [None]
  - PREGNANCY [None]
  - PULMONARY OEDEMA [None]
  - SUPRAVENTRICULAR TACHYCARDIA [None]
  - SURGERY [None]
  - TOOTHACHE [None]
  - TRANSIENT ISCHAEMIC ATTACK [None]
  - TREATMENT NONCOMPLIANCE [None]
  - TRICUSPID VALVE INCOMPETENCE [None]
  - URINARY TRACT INFECTION [None]
  - WEIGHT INCREASED [None]
